FAERS Safety Report 9014144 (Version 2)
Quarter: 2013Q1

REPORT INFORMATION
  Report Type: Spontaneous
  Country: US (occurrence: US)
  Receive Date: 20130115
  Receipt Date: 20130204
  Transmission Date: 20140127
  Serious: No
  Sender: FDA-Public Use
  Company Number: US-TEVA-379315USA

PATIENT
  Sex: Female

DRUGS (1)
  1. COPAXONE [Suspect]
     Indication: MULTIPLE SCLEROSIS

REACTIONS (15)
  - Fluid retention [Unknown]
  - Paraesthesia [Unknown]
  - Drug effect decreased [Unknown]
  - Muscle spasms [Unknown]
  - Constipation [Unknown]
  - Injection site pruritus [Unknown]
  - Peroneal nerve palsy [Unknown]
  - Muscular weakness [Recovering/Resolving]
  - Fatigue [Unknown]
  - Band sensation [Unknown]
  - Chromaturia [Unknown]
  - Eye disorder [Unknown]
  - Injection site erythema [Unknown]
  - Injection site mass [Unknown]
  - Dizziness [Unknown]
